FAERS Safety Report 8185458-7 (Version None)
Quarter: 2012Q1

REPORT INFORMATION
  Report Type: 
  Country: None (occurrence: None)
  Receive Date: 20120305
  Receipt Date: 20120305
  Transmission Date: 20120608
  Serious: Yes (Other)
  Sender: FDA-Public Use
  Company Number: AU-ABBOTT-11P-008-0872626-00

PATIENT
  Sex: Female
  Weight: 72 kg

DRUGS (1)
  1. HUMIRA [Suspect]
     Indication: CROHN'S DISEASE
     Dates: end: 20111104

REACTIONS (4)
  - THROMBOCYTOPENIA [None]
  - HAEMOLYTIC ANAEMIA [None]
  - RENAL IMPAIRMENT [None]
  - HAEMOLYTIC URAEMIC SYNDROME [None]
